FAERS Safety Report 22187814 (Version 3)
Quarter: 2023Q2

REPORT INFORMATION
  Report Type: Report from Study
  Country: US (occurrence: US)
  Receive Date: 20230408
  Receipt Date: 20230411
  Transmission Date: 20230722
  Serious: No
  Sender: FDA-Public Use
  Company Number: US-002147023-NVSC2023US080162

PATIENT
  Sex: Female

DRUGS (1)
  1. GABAPENTIN [Suspect]
     Active Substance: GABAPENTIN
     Indication: Systemic lupus erythematosus
     Dosage: UNK
     Route: 065

REACTIONS (9)
  - Pain [Unknown]
  - Blood creatinine increased [Unknown]
  - Arthralgia [Unknown]
  - Rash [Unknown]
  - Dry skin [Unknown]
  - Eczema [Unknown]
  - Oral candidiasis [Unknown]
  - Skin disorder [Unknown]
  - Drug ineffective for unapproved indication [Unknown]
